FAERS Safety Report 8305496-0 (Version None)
Quarter: 2012Q2

REPORT INFORMATION
  Report Type: 
  Country: None (occurrence: None)
  Receive Date: 20120423
  Receipt Date: 20120418
  Transmission Date: 20120825
  Serious: Yes (Hospitalization, Congenital Anomaly)
  Sender: FDA-Public Use
  Company Number: US-GLAXOSMITHKLINE-A0974452A

PATIENT
  Sex: Male

DRUGS (1)
  1. PAXIL [Suspect]
     Indication: PRODUCT USED FOR UNKNOWN INDICATION
     Route: 064

REACTIONS (10)
  - PIERRE ROBIN SYNDROME [None]
  - DYSPNOEA [None]
  - PREMATURE BABY [None]
  - RESPIRATORY FAILURE [None]
  - BRAIN INJURY [None]
  - BONE DISORDER [None]
  - MILD MENTAL RETARDATION [None]
  - FOETAL EXPOSURE DURING PREGNANCY [None]
  - CLEFT PALATE [None]
  - JAW DISORDER [None]
